FAERS Safety Report 23467609 (Version 1)
Quarter: 2024Q1

REPORT INFORMATION
  Report Type: Spontaneous
  Country: US (occurrence: US)
  Receive Date: 20240201
  Receipt Date: 20240201
  Transmission Date: 20240410
  Serious: No
  Sender: FDA-Public Use
  Company Number: US-Covis Pharma Europe B.V.-2024COV00105

PATIENT
  Age: 73 Year
  Sex: Male

DRUGS (1)
  1. DUAKLIR PRESSAIR [Suspect]
     Active Substance: ACLIDINIUM BROMIDE\FORMOTEROL FUMARATE

REACTIONS (1)
  - Product dose omission issue [Unknown]

NARRATIVE: CASE EVENT DATE: 20240101
